FAERS Safety Report 8595766-3 (Version None)
Quarter: 2012Q3

REPORT INFORMATION
  Report Type: 
  Country: None (occurrence: None)
  Receive Date: 20120815
  Receipt Date: 20120802
  Transmission Date: 20120928
  Serious: Yes (Hospitalization, Other)
  Sender: FDA-Public Use
  Company Number: ZA-ELI_LILLY_AND_COMPANY-ZA201208002305

PATIENT
  Age: 47 Year
  Sex: Female

DRUGS (4)
  1. LASIX [Concomitant]
     Indication: DIURETIC THERAPY
     Dosage: 1 DF, BID
     Route: 048
  2. ANTIHYPERTENSIVES [Concomitant]
     Indication: BLOOD PRESSURE ABNORMAL
     Dosage: 1 DF, EACH MORNING
     Route: 048
  3. HUMALOG MIX 75/25 [Suspect]
     Indication: TYPE 2 DIABETES MELLITUS
     Dosage: 50 U, EACH MORNING
     Route: 058
     Dates: start: 20110901
  4. HUMALOG MIX 75/25 [Suspect]
     Dosage: 30 U, EACH EVENING
     Route: 058
     Dates: start: 20110901

REACTIONS (2)
  - DYSPNOEA [None]
  - RENAL DISORDER [None]
